FAERS Safety Report 11302297 (Version 1)
Quarter: 2015Q3

REPORT INFORMATION
  Report Type: Spontaneous
  Country: US (occurrence: None)
  Receive Date: 20150723
  Receipt Date: 20150723
  Transmission Date: 20151125
  Serious: No
  Sender: FDA-Public Use
  Company Number: None

PATIENT
  Age: 60 Year
  Sex: Female
  Weight: 99.79 kg

DRUGS (12)
  1. LISINIPRIL [Concomitant]
  2. VITAMIN B [Concomitant]
     Active Substance: VITAMIN B
  3. FASLODEX [Suspect]
     Active Substance: FULVESTRANT
     Dosage: 2/250ML SHOTS ONCE EVERY 28 DAYS INTO THE MUSCLE
  4. TIMOPTIC GFS [Concomitant]
  5. VITAMIN E [Concomitant]
     Active Substance: .ALPHA.-TOCOPHEROL
  6. TUMS [Concomitant]
     Active Substance: CALCIUM CARBONATE
  7. VITAMIN C [Concomitant]
     Active Substance: ASCORBIC ACID
  8. FUROSEMIDE. [Concomitant]
     Active Substance: FUROSEMIDE
  9. BABY ASPIRIN [Concomitant]
     Active Substance: ASPIRIN
  10. ATENELOL [Concomitant]
     Active Substance: ATENOLOL
  11. VITAMIN D3 [Concomitant]
     Active Substance: CHOLECALCIFEROL
  12. KOMBIGLYZE XR [Concomitant]
     Active Substance: METFORMIN HYDROCHLORIDE\SAXAGLIPTIN HYDROCHLORIDE

REACTIONS (9)
  - Cough [None]
  - Pain in extremity [None]
  - Chills [None]
  - Tremor [None]
  - Pyrexia [None]
  - Throat tightness [None]
  - Pain in jaw [None]
  - Parosmia [None]
  - Choking [None]

NARRATIVE: CASE EVENT DATE: 20150721
